FAERS Safety Report 6465625-0 (Version None)
Quarter: 2009Q4

REPORT INFORMATION
  Report Type: 
  Country: None (occurrence: None)
  Receive Date: 20091201
  Receipt Date: 20091127
  Transmission Date: 20100525
  Serious: Yes (Death)
  Sender: FDA-Public Use
  Company Number: US-GILEAD-2009-0025710

PATIENT
  Sex: Female

DRUGS (5)
  1. LETAIRIS [Suspect]
     Indication: PULMONARY ARTERIAL HYPERTENSION
     Route: 048
     Dates: start: 20070701, end: 20091123
  2. COUMADIN [Concomitant]
  3. PLAQUENIL [Concomitant]
  4. ROXICET [Concomitant]
  5. NEXIUM [Concomitant]

REACTIONS (1)
  - PULMONARY HYPERTENSION [None]
